FAERS Safety Report 4476348-1 (Version None)
Quarter: 2004Q4

REPORT INFORMATION
  Report Type: 
  Country: None (occurrence: None)
  Receive Date: 20041016
  Receipt Date: 20041011
  Transmission Date: 20050328
  Serious: Yes (Hospitalization)
  Sender: FDA-Public Use
  Company Number: DE-MERCK-0410DEU00351

PATIENT
  Age: 51 Year
  Sex: Female

DRUGS (1)
  1. VIOXX [Suspect]
     Indication: INTERVERTEBRAL DISC DISORDER
     Route: 048
     Dates: start: 20000101, end: 20020101

REACTIONS (3)
  - FEELING ABNORMAL [None]
  - PALPITATIONS [None]
  - PULMONARY EMBOLISM [None]
